FAERS Safety Report 8458619-7 (Version None)
Quarter: 2012Q2

REPORT INFORMATION
  Report Type: 
  Country: None (occurrence: None)
  Receive Date: 20120615
  Receipt Date: 20120604
  Transmission Date: 20120825
  Serious: Yes (Disabling, Other)
  Sender: FDA-Public Use
  Company Number: 2010MA005107

PATIENT
  Sex: Female
  Weight: 79.3795 kg

DRUGS (45)
  1. ALPRAZOLAM [Concomitant]
  2. DURADEX [Concomitant]
  3. SUCRALFATE [Concomitant]
  4. OXYCONTIN [Concomitant]
  5. ATIVAN [Concomitant]
  6. LYRICA [Concomitant]
  7. AVALIDE [Concomitant]
  8. COMBIVENT [Concomitant]
  9. HYDRODOCODONE/APAP [Concomitant]
  10. METHOTREXATE [Concomitant]
  11. SYNTHROID [Concomitant]
  12. TRIAMCINOLONE [Concomitant]
  13. AMITRIPTYLINE HCL [Concomitant]
  14. AZITHROMYCIN [Concomitant]
  15. SINGULAIR [Concomitant]
  16. SAVELLA [Concomitant]
  17. ALBUTEROL [Concomitant]
  18. LEFLUNOMIDE [Concomitant]
  19. LEVAQUIN [Concomitant]
  20. LIDODERM CREAM [Concomitant]
  21. PREMARIN [Concomitant]
  22. SPIRIVA [Concomitant]
  23. AVAPRO [Concomitant]
  24. FLUCONAZOLE [Concomitant]
  25. METFORMIN HCL [Concomitant]
  26. METHYLPREDNISOLONE [Concomitant]
  27. MIRAPEX [Concomitant]
  28. BACLOFEN [Concomitant]
  29. CARISOPRODOL [Concomitant]
  30. FLOVENT [Concomitant]
  31. GABAPENTIN [Concomitant]
  32. AMBIEN [Concomitant]
  33. METOCLOPRAMIDE [Suspect]
     Indication: GASTROOESOPHAGEAL REFLUX DISEASE
     Dosage: 10 MG;QC + HS;PO
     Route: 048
     Dates: start: 20040603, end: 20081103
  34. CLARITHROMYCIN [Concomitant]
  35. FOLIC ACID [Concomitant]
  36. KETOCONAZOLE [Concomitant]
  37. TAZTIA XT [Concomitant]
  38. BUSPAR [Concomitant]
  39. MIRAPEX [Concomitant]
  40. NEURONTIN [Concomitant]
  41. STEROID INJECTIONS [Concomitant]
  42. CIPROFLOXACIN [Concomitant]
  43. CLINDAMYCIN [Concomitant]
  44. PRILOSEC [Concomitant]
  45. XANAX [Concomitant]

REACTIONS (35)
  - EMOTIONAL DISORDER [None]
  - HYPOAESTHESIA [None]
  - PARAESTHESIA [None]
  - VIITH NERVE PARALYSIS [None]
  - TOOTH DISORDER [None]
  - INTERVERTEBRAL DISC DEGENERATION [None]
  - INJURY [None]
  - PARANOIA [None]
  - ANAEMIA [None]
  - FORMICATION [None]
  - POST POLIO SYNDROME [None]
  - SOMNOLENCE [None]
  - WEIGHT INCREASED [None]
  - SINUSITIS [None]
  - PAIN IN EXTREMITY [None]
  - RHEUMATOID ARTHRITIS [None]
  - OSTEOARTHRITIS [None]
  - DEPRESSION [None]
  - ANXIETY [None]
  - RESTLESS LEGS SYNDROME [None]
  - CONFUSIONAL STATE [None]
  - EXTRAPYRAMIDAL DISORDER [None]
  - ECONOMIC PROBLEM [None]
  - FIBROMYALGIA [None]
  - TREMOR [None]
  - DYSKINESIA [None]
  - ABDOMINAL PAIN [None]
  - MYOSITIS [None]
  - WITHDRAWAL SYNDROME [None]
  - TARDIVE DYSKINESIA [None]
  - NEUROPATHY PERIPHERAL [None]
  - SPINAL OSTEOARTHRITIS [None]
  - INTERVERTEBRAL DISC PROTRUSION [None]
  - PAIN [None]
  - MUSCLE TIGHTNESS [None]
